FAERS Safety Report 6486677-8 (Version None)
Quarter: 2009Q4

REPORT INFORMATION
  Report Type: 
  Country: None (occurrence: None)
  Receive Date: 20091210
  Receipt Date: 20091202
  Transmission Date: 20100525
  Serious: Yes (Other)
  Sender: FDA-Public Use
  Company Number: FR-ROCHE-672084

PATIENT
  Sex: Male

DRUGS (15)
  1. MIRCERA [Suspect]
     Route: 042
     Dates: start: 20091021
  2. MIRCERA [Suspect]
     Route: 042
     Dates: start: 20090514, end: 20090601
  3. MIRCERA [Suspect]
     Route: 042
     Dates: start: 20090701, end: 20090901
  4. GUTRON [Concomitant]
     Indication: HYPOTENSION
     Route: 048
  5. POTASSIUM CHLORIDE [Concomitant]
     Indication: HYPOKALAEMIA
     Dosage: DOSE REPORTED AS 0.5 G/H
     Route: 042
  6. UVEDOSE [Concomitant]
     Route: 048
  7. MIMPARA [Concomitant]
     Route: 048
  8. LASILIX [Concomitant]
     Route: 048
  9. UN-ALFA [Concomitant]
     Route: 048
  10. AERIUS [Concomitant]
     Route: 048
  11. CALCIDIA [Concomitant]
     Dosage: 4 DOSE FORMS PER WEEK
     Route: 048
  12. LEXOMIL [Concomitant]
     Route: 048
  13. LIPANTHYL [Concomitant]
     Dosage: TAKEN AT NIGHT
     Route: 048
  14. RENAGEL [Concomitant]
     Route: 048
  15. NEORECORMON [Concomitant]
     Dates: end: 20090501

REACTIONS (2)
  - DECREASED APPETITE [None]
  - NAUSEA [None]
